FAERS Safety Report 24880786 (Version 3)
Quarter: 2025Q1

REPORT INFORMATION
  Report Type: Spontaneous
  Country: US (occurrence: US)
  Receive Date: 20250123
  Receipt Date: 20250204
  Transmission Date: 20250409
  Serious: Yes (Death, Life-Threatening, Hospitalization, Other)
  Sender: SANDOZ
  Company Number: US-SANDOZ-SDZ2025US004282

PATIENT
  Age: 43 Year
  Sex: Male
  Weight: 88 kg

DRUGS (10)
  1. CEFTRIAXONE [Suspect]
     Active Substance: CEFTRIAXONE
     Indication: Evidence based treatment
     Route: 042
     Dates: start: 20250121
  2. CIPRO [Concomitant]
     Active Substance: CIPROFLOXACIN HYDROCHLORIDE
     Indication: Cellulitis
     Dosage: 500 MG, QD
     Route: 065
     Dates: start: 20250118
  3. COREG [Concomitant]
     Active Substance: CARVEDILOL
     Indication: Hypertension
     Dosage: 12.5 MG, BID
     Route: 065
     Dates: start: 20250110
  4. COREG [Concomitant]
     Active Substance: CARVEDILOL
     Indication: Blood pressure measurement
  5. DOXYCYCLINE [Concomitant]
     Active Substance: DOXYCYCLINE
     Indication: Cellulitis
     Dosage: 100 MG, BID
     Route: 065
     Dates: start: 20250118
  6. EPOGEN [Concomitant]
     Active Substance: ERYTHROPOIETIN
     Indication: Product used for unknown indication
     Route: 065
     Dates: start: 20250120
  7. GABAPENTIN [Concomitant]
     Active Substance: GABAPENTIN
     Indication: Product used for unknown indication
     Dosage: 300 MG, QD
     Route: 065
     Dates: start: 20250116
  8. INSULIN NOS [Concomitant]
     Active Substance: INSULIN NOS
     Indication: Diabetes mellitus
     Dosage: TWICE A DAY 70/30
     Route: 065
     Dates: start: 20250118
  9. PANTOPRAZOLE [Concomitant]
     Active Substance: PANTOPRAZOLE
     Indication: Product used for unknown indication
     Dosage: 40 MG, QD
     Route: 065
     Dates: start: 20250108
  10. QUESTRAN [Concomitant]
     Active Substance: CHOLESTYRAMINE
     Indication: Product used for unknown indication
     Dosage: 4 G, QD
     Route: 065
     Dates: start: 20250115

REACTIONS (2)
  - Cardiac arrest [Fatal]
  - Anaphylactic reaction [Unknown]

NARRATIVE: CASE EVENT DATE: 20250121
